FAERS Safety Report 13170182 (Version 2)
Quarter: 2017Q2

REPORT INFORMATION
  Report Type: Spontaneous
  Country: JP (occurrence: JP)
  Receive Date: 20170131
  Receipt Date: 20170407
  Transmission Date: 20170830
  Serious: Yes (Other)
  Sender: FDA-Public Use
  Company Number: JP-MYLANLABS-2017M1004540

PATIENT

DRUGS (2)
  1. PEMETREXED. [Suspect]
     Active Substance: PEMETREXED
     Indication: LUNG ADENOCARCINOMA
     Route: 065
  2. CARBOPLATIN MYLAN [Suspect]
     Active Substance: CARBOPLATIN
     Indication: LUNG ADENOCARCINOMA
     Route: 065

REACTIONS (4)
  - Interstitial lung disease [Unknown]
  - Metastatic neoplasm [Unknown]
  - Platelet count decreased [Unknown]
  - Disseminated intravascular coagulation [Unknown]
